FAERS Safety Report 8047268-0 (Version None)
Quarter: 2012Q1

REPORT INFORMATION
  Report Type: 
  Country: None (occurrence: None)
  Receive Date: 20120116
  Receipt Date: 20120113
  Transmission Date: 20120608
  Serious: Yes (Hospitalization, Other)
  Sender: FDA-Public Use
  Company Number: US-BAYER-2012-004430

PATIENT
  Age: 59 Year
  Sex: Female

DRUGS (2)
  1. TYLENOL W/ CODEINE NO. 3 [Concomitant]
  2. BETASERON [Suspect]
     Indication: SECONDARY PROGRESSIVE MULTIPLE SCLEROSIS
     Dosage: 8 MIU, QOD
     Route: 058
     Dates: start: 20100827

REACTIONS (1)
  - URINARY TRACT INFECTION [None]
